FAERS Safety Report 19642817 (Version 1)
Quarter: 2021Q3

REPORT INFORMATION
  Report Type: Spontaneous
  Country: US (occurrence: US)
  Receive Date: 20210730
  Receipt Date: 20210730
  Transmission Date: 20211014
  Serious: Yes (Hospitalization, Other)
  Sender: FDA-Public Use
  Company Number: US-PFIZER INC-202100929215

PATIENT
  Age: 32 Year
  Sex: Female
  Weight: 48.53 kg

DRUGS (3)
  1. GEODON [Suspect]
     Active Substance: ZIPRASIDONE HYDROCHLORIDE\ZIPRASIDONE MESYLATE
     Indication: PSYCHOTIC DISORDER
     Dosage: UNK
  2. GEODON [Suspect]
     Active Substance: ZIPRASIDONE HYDROCHLORIDE\ZIPRASIDONE MESYLATE
     Indication: TINNITUS
  3. GEODON [Suspect]
     Active Substance: ZIPRASIDONE HYDROCHLORIDE\ZIPRASIDONE MESYLATE
     Indication: SCHIZOAFFECTIVE DISORDER

REACTIONS (12)
  - Confusional state [Unknown]
  - Nervousness [Unknown]
  - Polycystic ovaries [Recovered/Resolved]
  - Vulval disorder [Recovered/Resolved]
  - Hallucination [Recovered/Resolved]
  - Dehydration [Unknown]
  - Distractibility [Unknown]
  - Memory impairment [Unknown]
  - Neck mass [Recovered/Resolved]
  - Vomiting [Unknown]
  - Scar [Recovered/Resolved]
  - Overdose [Unknown]
